FAERS Safety Report 17667890 (Version 2)
Quarter: 2020Q2

REPORT INFORMATION
  Report Type: Spontaneous
  Country: CA (occurrence: CA)
  Receive Date: 20200414
  Receipt Date: 20200527
  Transmission Date: 20200713
  Serious: Yes (Other)
  Sender: FDA-Public Use
  Company Number: CA-PFIZER INC-2020118833

PATIENT
  Age: 64 Year
  Sex: Male

DRUGS (1)
  1. XELJANZ [Suspect]
     Active Substance: TOFACITINIB CITRATE
     Indication: COLITIS ULCERATIVE
     Dosage: 10 MG BID (2X/DAY)
     Route: 048
     Dates: start: 20200221

REACTIONS (4)
  - Therapeutic product effect incomplete [Unknown]
  - Mucous stools [Unknown]
  - Faeces soft [Unknown]
  - Haematochezia [Unknown]

NARRATIVE: CASE EVENT DATE: 202004
